FAERS Safety Report 9958582 (Version 2)
Quarter: 2014Q1

REPORT INFORMATION
  Report Type: Report from Study
  Country: FR (occurrence: FR)
  Receive Date: 20140305
  Receipt Date: 20140305
  Transmission Date: 20141002
  Serious: Yes (Hospitalization)
  Sender: FDA-Public Use
  Company Number: FR-ROCHE-1301096

PATIENT
  Age: 74 Year
  Sex: Male

DRUGS (1)
  1. RITUXIMAB [Suspect]
     Indication: CHRONIC LYMPHOCYTIC LEUKAEMIA
     Route: 042
     Dates: start: 20130415

REACTIONS (2)
  - Febrile neutropenia [Recovered/Resolved]
  - Febrile bone marrow aplasia [Recovered/Resolved]
